FAERS Safety Report 8134494-5 (Version None)
Quarter: 2012Q1

REPORT INFORMATION
  Report Type: 
  Country: None (occurrence: None)
  Receive Date: 20120214
  Receipt Date: 20120208
  Transmission Date: 20120608
  Serious: Yes (Other)
  Sender: FDA-Public Use
  Company Number: US-BAYER-2011-120511

PATIENT
  Age: 57 Year
  Sex: Male

DRUGS (6)
  1. ANALGESICS [Concomitant]
  2. CARAFATE [Concomitant]
  3. NEXAVAR [Suspect]
     Indication: HEPATIC NEOPLASM MALIGNANT
     Dosage: 400 MG, BID
     Route: 048
     Dates: start: 20111204
  4. NEXAVAR [Suspect]
     Dosage: 400 MG QAM + 200 MG QPM
     Dates: end: 20120207
  5. DIURETICS [Concomitant]
  6. LACTULOSE [Concomitant]

REACTIONS (11)
  - CHROMATURIA [None]
  - AMMONIA INCREASED [None]
  - ABDOMINAL PAIN UPPER [None]
  - EPISTAXIS [None]
  - HEPATIC NEOPLASM MALIGNANT [None]
  - MASS [None]
  - RASH PRURITIC [None]
  - MUSCLE SPASMS [None]
  - VOMITING [None]
  - ACNE [None]
  - DIARRHOEA [None]
